FAERS Safety Report 18491213 (Version 4)
Quarter: 2021Q2

REPORT INFORMATION
  Report Type: Spontaneous
  Country: US (occurrence: US)
  Receive Date: 20201111
  Receipt Date: 20210518
  Transmission Date: 20210717
  Serious: No
  Sender: FDA-Public Use
  Company Number: US-SA-2020SA310380

PATIENT
  Age: 63 Year
  Sex: Female

DRUGS (1)
  1. DUPIXENT [Suspect]
     Active Substance: DUPILUMAB
     Indication: DERMATITIS ATOPIC
     Dosage: 300 MG, QOW
     Route: 058
     Dates: start: 20201001

REACTIONS (7)
  - Herpes zoster [Unknown]
  - Therapeutic response shortened [Unknown]
  - Lip blister [Unknown]
  - Eczema [Unknown]
  - Rash [Unknown]
  - Pruritus [Unknown]
  - Dry skin [Unknown]

NARRATIVE: CASE EVENT DATE: 202010
